FAERS Safety Report 18059703 (Version 1)
Quarter: 2020Q3

REPORT INFORMATION
  Report Type: Spontaneous
  Country: US (occurrence: US)
  Receive Date: 20200723
  Receipt Date: 20200723
  Transmission Date: 20201103
  Serious: No
  Sender: FDA-Public Use
  Company Number: None

PATIENT
  Age: 42 Year
  Sex: Male
  Weight: 112.5 kg

DRUGS (2)
  1. NUVOMED HAND SANITIZER GEL 75% ETHYL ALCOHOL EXTRA STRENGTH [Suspect]
     Active Substance: ALCOHOL
     Indication: INFECTION PROPHYLAXIS
     Route: 061
     Dates: start: 20200720, end: 20200721
  2. NUVOMED HAND SANITIZER GEL 75% ETHYL ALCOHOL EXTRA STRENGTH [Suspect]
     Active Substance: ALCOHOL
     Indication: COVID-19 PROPHYLAXIS
     Route: 061
     Dates: start: 20200720, end: 20200721

REACTIONS (4)
  - Product complaint [None]
  - Headache [None]
  - Rash [None]
  - Product formulation issue [None]

NARRATIVE: CASE EVENT DATE: 20200720
